FAERS Safety Report 6032626-6 (Version None)
Quarter: 2008Q4

REPORT INFORMATION
  Report Type: 
  Country: None (occurrence: None)
  Receive Date: 20081229
  Receipt Date: 20080805
  Transmission Date: 20090506
  Serious: Yes (Other)
  Sender: FDA-Public Use
  Company Number: P08-009

PATIENT
  Sex: Male

DRUGS (1)
  1. PROSTASCINT [Suspect]
     Dosage: 7.2 MCI
     Dates: start: 20080801

REACTIONS (2)
  - PRURITUS [None]
  - URTICARIA [None]
